FAERS Safety Report 15220283 (Version 1)
Quarter: 2018Q3

REPORT INFORMATION
  Report Type: Spontaneous
  Country: US (occurrence: US)
  Receive Date: 20180731
  Receipt Date: 20180731
  Transmission Date: 20181010
  Serious: Yes (Death, Other)
  Sender: FDA-Public Use
  Company Number: US-APOTEX-2018AP017945

PATIENT
  Age: 64 Year
  Sex: Male

DRUGS (15)
  1. CEFAZOLIN [Suspect]
     Active Substance: CEFAZOLIN
     Indication: PNEUMONIA BACTERIAL
     Dosage: UNK
     Route: 065
  2. TRIMETHOPRIM SULFAMETHOXAZOLE [Suspect]
     Active Substance: SULFAMETHOXAZOLE\TRIMETHOPRIM
     Indication: PNEUMONIA BACTERIAL
     Dosage: UNK
     Route: 065
  3. MEROPENEM. [Suspect]
     Active Substance: MEROPENEM
     Indication: PNEUMONIA BACTERIAL
     Dosage: UNK
     Route: 065
  4. VANCOMYCIN HCL [Suspect]
     Active Substance: VANCOMYCIN HYDROCHLORIDE
     Indication: PNEUMONIA BACTERIAL
     Dosage: UNK
     Route: 065
  5. CEFTAZIDIME. [Suspect]
     Active Substance: CEFTAZIDIME
     Indication: PNEUMONIA BACTERIAL
     Dosage: UNK
     Route: 065
  6. PIPERACILLIN AND TAZOBACTAM [Suspect]
     Active Substance: PIPERACILLIN SODIUM\TAZOBACTAM SODIUM
     Indication: PNEUMONIA BACTERIAL
     Dosage: UNK
     Route: 065
  7. AMPICILLIN AND SULBACTAM [Suspect]
     Active Substance: AMPICILLIN SODIUM\SULBACTAM SODIUM
     Indication: PNEUMONIA BACTERIAL
     Dosage: UNK
     Route: 065
  8. AMPICILLIN SODIUM. [Suspect]
     Active Substance: AMPICILLIN SODIUM
     Indication: PNEUMONIA BACTERIAL
     Dosage: UNK
     Route: 065
  9. CIPROFLOXACIN. [Suspect]
     Active Substance: CIPROFLOXACIN
     Indication: PNEUMONIA BACTERIAL
     Dosage: UNK
     Route: 065
  10. GENTAMICIN SULFATE. [Suspect]
     Active Substance: GENTAMICIN SULFATE
     Indication: PNEUMONIA BACTERIAL
     Dosage: UNK
     Route: 065
  11. AZITHROMYCIN ANHYDROUS. [Suspect]
     Active Substance: AZITHROMYCIN ANHYDROUS
     Indication: PNEUMONIA BACTERIAL
     Dosage: UNK
     Route: 065
  12. CEFUROXIME. [Suspect]
     Active Substance: CEFUROXIME
     Indication: PNEUMONIA BACTERIAL
     Dosage: UNK
     Route: 065
  13. CEFEPIME [Suspect]
     Active Substance: CEFEPIME HYDROCHLORIDE
     Indication: PNEUMONIA BACTERIAL
     Dosage: UNK
     Route: 065
  14. VORICONAZOLE. [Suspect]
     Active Substance: VORICONAZOLE
     Indication: PNEUMONIA BACTERIAL
     Dosage: UNK
     Route: 065
  15. AZTREONAM. [Suspect]
     Active Substance: AZTREONAM
     Indication: PNEUMONIA BACTERIAL
     Dosage: UNK
     Route: 065

REACTIONS (1)
  - Drug ineffective [Fatal]
